FAERS Safety Report 8837452 (Version 3)
Quarter: 2013Q1

REPORT INFORMATION
  Report Type: Spontaneous
  Country: GB (occurrence: GB)
  Receive Date: 20121012
  Receipt Date: 20130228
  Transmission Date: 20140127
  Serious: Yes (Death, Other)
  Sender: FDA-Public Use
  Company Number: PHFR2012GB005326

PATIENT
  Age: 35 Year
  Sex: Male

DRUGS (4)
  1. CLOZARIL [Suspect]
     Indication: SCHIZOPHRENIA
     Route: 048
     Dates: start: 20030610
  2. CLOZARIL [Suspect]
     Dosage: DOSE REDUCED
     Route: 048
  3. AMISULPRIDE [Concomitant]
  4. HYOSCINE [Concomitant]

REACTIONS (6)
  - Volvulus [Fatal]
  - Septic shock [Fatal]
  - Constipation [Unknown]
  - Mental impairment [Unknown]
  - Antipsychotic drug level increased [Unknown]
  - Platelet count decreased [Unknown]
